FAERS Safety Report 7373440-9 (Version None)
Quarter: 2011Q1

REPORT INFORMATION
  Report Type: 
  Country: None (occurrence: None)
  Receive Date: 20110325
  Receipt Date: 20110315
  Transmission Date: 20110831
  Serious: Yes (Other)
  Sender: FDA-Public Use
  Company Number: 2006BI019088

PATIENT
  Age: 44 Year
  Sex: Female
  Weight: 54 kg

DRUGS (2)
  1. AVONEX [Suspect]
     Route: 030
     Dates: end: 20071130
  2. AVONEX [Suspect]
     Indication: MULTIPLE SCLEROSIS
     Route: 030
     Dates: start: 20041104, end: 20061213

REACTIONS (2)
  - FIBROCYSTIC BREAST DISEASE [None]
  - BREAST CANCER IN SITU [None]
